FAERS Safety Report 9467111 (Version 2)
Quarter: 2013Q3

REPORT INFORMATION
  Report Type: Spontaneous
  Country: US (occurrence: US)
  Receive Date: 20130820
  Receipt Date: 20130820
  Transmission Date: 20140515
  Serious: No
  Sender: FDA-Public Use
  Company Number: US-CUBIST PHARMACEUTICAL, INC.-2012US000007

PATIENT
  Age: 54 Year
  Sex: Female

DRUGS (3)
  1. ENTEREG [Suspect]
     Indication: POSTOPERATIVE ILEUS
     Dosage: 12 MG, 1X
     Route: 048
     Dates: start: 20120203, end: 20120203
  2. VICODIN [Concomitant]
     Indication: DYSMENORRHOEA
     Dosage: UNK UNK, PRN
     Route: 048
  3. ANESTHETICS [Concomitant]
     Dosage: UNK UNK, UNK

REACTIONS (1)
  - Abdominal pain [Recovered/Resolved]
